FAERS Safety Report 24268997 (Version 2)
Quarter: 2025Q2

REPORT INFORMATION
  Report Type: Spontaneous
  Country: AT (occurrence: AT)
  Receive Date: 20240830
  Receipt Date: 20250418
  Transmission Date: 20250717
  Serious: Yes (Death)
  Sender: ROCHE
  Company Number: AT-ROCHE-10000066085

PATIENT
  Sex: Male

DRUGS (2)
  1. HEMLIBRA [Suspect]
     Active Substance: EMICIZUMAB-KXWH
     Indication: Factor VIII deficiency
     Route: 065
     Dates: start: 2018
  2. ANTIHEMOPHILIC FACTOR HUMAN [Suspect]
     Active Substance: ANTIHEMOPHILIC FACTOR HUMAN
     Indication: Factor VIII deficiency
     Route: 065

REACTIONS (3)
  - Hepatic cirrhosis [Fatal]
  - Hepatocellular carcinoma [Fatal]
  - Hepatitis C [Unknown]
